FAERS Safety Report 20157053 (Version 1)
Quarter: 2021Q4

REPORT INFORMATION
  Report Type: Spontaneous
  Country: US (occurrence: US)
  Receive Date: 20211207
  Receipt Date: 20211207
  Transmission Date: 20220303
  Serious: No
  Sender: FDA-Public Use
  Company Number: US-BRISTOL-MYERS SQUIBB COMPANY-BMS-2021-131250

PATIENT
  Age: 53 Year
  Sex: Female

DRUGS (3)
  1. ORENCIA [Suspect]
     Active Substance: ABATACEPT
     Indication: Sarcoidosis
     Dosage: 125 MG/ML, ONCE WEEKLY
     Route: 058
     Dates: start: 20211119
  2. ORENCIA [Suspect]
     Active Substance: ABATACEPT
     Indication: Osteoarthritis
  3. ORENCIA [Suspect]
     Active Substance: ABATACEPT
     Indication: Rheumatoid arthritis

REACTIONS (1)
  - Fatigue [Not Recovered/Not Resolved]
